FAERS Safety Report 13517604 (Version 1)
Quarter: 2017Q2

REPORT INFORMATION
  Report Type: Spontaneous
  Country: US (occurrence: US)
  Receive Date: 20170505
  Receipt Date: 20170505
  Transmission Date: 20170830
  Serious: Yes (Hospitalization)
  Sender: FDA-Public Use
  Company Number: None

PATIENT
  Age: 82 Year
  Sex: Male
  Weight: 76.9 kg

DRUGS (11)
  1. VITD [Concomitant]
  2. LASIX [Concomitant]
     Active Substance: FUROSEMIDE
  3. GLIMEPIRIDE. [Suspect]
     Active Substance: GLIMEPIRIDE
     Indication: DIABETES MELLITUS
     Dosage: 2MG BEFORE BREAKFAST PO
     Route: 048
  4. ALLOPURINOL. [Concomitant]
     Active Substance: ALLOPURINOL
  5. IMDUR [Concomitant]
     Active Substance: ISOSORBIDE MONONITRATE
  6. PLAVIX [Concomitant]
     Active Substance: CLOPIDOGREL BISULFATE
  7. ECOTRIN [Concomitant]
     Active Substance: ASPIRIN
  8. OSCAL [Concomitant]
     Active Substance: CALCIUM CARBONATE
  9. HYDRALAZINE [Concomitant]
     Active Substance: HYDRALAZINE HYDROCHLORIDE
  10. FE [Concomitant]
     Active Substance: IRON
  11. ZESTRIL [Concomitant]
     Active Substance: LISINOPRIL

REACTIONS (5)
  - Acute kidney injury [None]
  - Necrosis [None]
  - Pain in extremity [None]
  - Hypoglycaemia [None]
  - Infection [None]

NARRATIVE: CASE EVENT DATE: 20160830
